FAERS Safety Report 20157084 (Version 1)
Quarter: 2021Q4

REPORT INFORMATION
  Report Type: Spontaneous
  Country: US (occurrence: US)
  Receive Date: 20211207
  Receipt Date: 20211207
  Transmission Date: 20220304
  Serious: No
  Sender: FDA-Public Use
  Company Number: US-IBSA PHARMA INC.-2020CHE000006

PATIENT

DRUGS (4)
  1. LEVOTHYROXINE SODIUM [Suspect]
     Active Substance: LEVOTHYROXINE SODIUM
     Indication: Thyroid disorder
     Dosage: UNK
  2. SOTALOL [Suspect]
     Active Substance: SOTALOL
     Indication: Thyroid disorder
     Dosage: UNK
  3. DILTIAZEM [Suspect]
     Active Substance: DILTIAZEM
     Indication: Thyroid disorder
     Dosage: UNK
  4. XARELTO [Suspect]
     Active Substance: RIVAROXABAN
     Indication: Thyroid disorder
     Dosage: UNK

REACTIONS (1)
  - Asthenia [Unknown]
